FAERS Safety Report 12572299 (Version 2)
Quarter: 2016Q3

REPORT INFORMATION
  Report Type: Spontaneous
  Country: JP (occurrence: JP)
  Receive Date: 20160719
  Receipt Date: 20160929
  Transmission Date: 20161109
  Serious: Yes (Other)
  Sender: FDA-Public Use
  Company Number: ALJP2016JP001067

PATIENT
  Age: 71 Year
  Sex: Female

DRUGS (2)
  1. AZORGA COMBINATION OPHTHALMIC SUSPENSION [Suspect]
     Active Substance: BRINZOLAMIDE\TIMOLOL MALEATE
     Indication: EXFOLIATION SYNDROME
  2. AZORGA COMBINATION OPHTHALMIC SUSPENSION [Suspect]
     Active Substance: BRINZOLAMIDE\TIMOLOL MALEATE
     Indication: NORMAL TENSION GLAUCOMA
     Dosage: 2 GTT, BID (1 TO 2 GTT BID)
     Route: 047
     Dates: start: 20140114, end: 20160413

REACTIONS (3)
  - Ophthalmic herpes simplex [Recovered/Resolved]
  - Ophthalmic herpes simplex [Recovered/Resolved]
  - Corneal disorder [Recovered/Resolved]

NARRATIVE: CASE EVENT DATE: 20140414
